FAERS Safety Report 7647536-8 (Version None)
Quarter: 2011Q3

REPORT INFORMATION
  Report Type: 
  Country: None (occurrence: None)
  Receive Date: 20110801
  Receipt Date: 20110722
  Transmission Date: 20111222
  Serious: Yes (Disabling)
  Sender: FDA-Public Use
  Company Number: FR-GLAXOSMITHKLINE-B0734468A

PATIENT
  Age: 26 Year
  Sex: Male

DRUGS (2)
  1. ALLOPURINOL [Concomitant]
     Indication: HYPERURICAEMIA
     Route: 065
  2. ZOVIRAX [Suspect]
     Indication: PRODUCT USED FOR UNKNOWN INDICATION
     Route: 048
     Dates: start: 20090801

REACTIONS (3)
  - COMPLEX REGIONAL PAIN SYNDROME [None]
  - TENDON DISORDER [None]
  - OVERDOSE [None]
